FAERS Safety Report 16985954 (Version 1)
Quarter: 2019Q4

REPORT INFORMATION
  Report Type: Spontaneous
  Country: US (occurrence: US)
  Receive Date: 20190917
  Receipt Date: 20190917
  Transmission Date: 20200122
  Serious: No
  Sender: FDA-Public Use
  Company Number: None

PATIENT
  Age: 47 Year
  Sex: Female
  Weight: 99.2 kg

DRUGS (1)
  1. CISPLATIN. [Suspect]
     Active Substance: CISPLATIN
     Dosage: ?          OTHER DOSE:90.4MG;?
     Dates: end: 20190911

REACTIONS (2)
  - Dysphonia [None]
  - Viral infection [None]

NARRATIVE: CASE EVENT DATE: 20190911
